FAERS Safety Report 22237828 (Version 4)
Quarter: 2024Q4

REPORT INFORMATION
  Report Type: Spontaneous
  Country: US (occurrence: US)
  Receive Date: 20230421
  Receipt Date: 20241110
  Transmission Date: 20250115
  Serious: Yes (Other)
  Sender: SANOFI AVENTIS
  Company Number: US-SA-SAC20230420000497

PATIENT
  Age: 60 Year
  Sex: Female

DRUGS (2)
  1. DUPIXENT [Suspect]
     Active Substance: DUPILUMAB
     Indication: Eosinophilic oesophagitis
     Dosage: 300 MG, FREQUENCY: OTHER
     Route: 058
  2. DUPIXENT [Suspect]
     Active Substance: DUPILUMAB
     Dosage: 300 MG, QW
     Route: 058
     Dates: start: 202212, end: 2024

REACTIONS (5)
  - Rheumatoid arthritis [Unknown]
  - Arthralgia [Unknown]
  - Injection site urticaria [Recovered/Resolved]
  - Injection site pruritus [Unknown]
  - Injection site erythema [Unknown]
